FAERS Safety Report 19996542 (Version 1)
Quarter: 2021Q4

REPORT INFORMATION
  Report Type: Spontaneous
  Country: US (occurrence: US)
  Receive Date: 20211026
  Receipt Date: 20211026
  Transmission Date: 20220303
  Serious: Yes (Death)
  Sender: FDA-Public Use
  Company Number: 2021A782740

PATIENT
  Age: 804 Month
  Sex: Female

DRUGS (1)
  1. SYMBICORT [Suspect]
     Active Substance: BUDESONIDE\FORMOTEROL FUMARATE DIHYDRATE
     Dosage: SYMBICORT 160/4.5 DOSAGE UNKNOWN
     Route: 055
     Dates: start: 202104

REACTIONS (1)
  - Death [Fatal]

NARRATIVE: CASE EVENT DATE: 20210901
